FAERS Safety Report 18241898 (Version 1)
Quarter: 2020Q3

REPORT INFORMATION
  Report Type: Spontaneous
  Country: US (occurrence: US)
  Receive Date: 20200908
  Receipt Date: 20200908
  Transmission Date: 20201103
  Serious: No
  Sender: FDA-Public Use
  Company Number: None

PATIENT
  Age: 86 Year
  Sex: Female
  Weight: 62.1 kg

DRUGS (14)
  1. OLMESARTAN [Concomitant]
     Active Substance: OLMESARTAN
  2. ASPIRIN. [Concomitant]
     Active Substance: ASPIRIN
  3. BENICAR [Concomitant]
     Active Substance: OLMESARTAN MEDOXOMIL
  4. CALCIUM [Concomitant]
     Active Substance: CALCIUM
  5. CENTRUM [Concomitant]
     Active Substance: VITAMINS
  6. PLAVIX [Concomitant]
     Active Substance: CLOPIDOGREL BISULFATE
  7. NORVASC [Concomitant]
     Active Substance: AMLODIPINE BESYLATE
  8. VITAMIN D [Concomitant]
     Active Substance: VITAMIN D NOS
  9. ACIPHEX [Concomitant]
     Active Substance: RABEPRAZOLE SODIUM
  10. DICYCLOMINE [Concomitant]
     Active Substance: DICYCLOMINE HYDROCHLORIDE
  11. SUCRALFATE. [Concomitant]
     Active Substance: SUCRALFATE
  12. PROBIOTICS [Concomitant]
     Active Substance: PROBIOTICS NOS
  13. IMATINIB. [Suspect]
     Active Substance: IMATINIB MESYLATE
     Indication: CHRONIC MYELOID LEUKAEMIA
     Route: 048
     Dates: start: 20200511
  14. VITAMIN B12 [Concomitant]
     Active Substance: CYANOCOBALAMIN

REACTIONS (2)
  - Cognitive disorder [None]
  - Transient ischaemic attack [None]

NARRATIVE: CASE EVENT DATE: 20200908
